FAERS Safety Report 14782974 (Version 2)
Quarter: 2018Q2

REPORT INFORMATION
  Report Type: Spontaneous
  Country: DE (occurrence: DE)
  Receive Date: 20180420
  Receipt Date: 20180529
  Transmission Date: 20180711
  Serious: Yes (Death, Life-Threatening, Hospitalization, Other)
  Sender: FDA-Public Use
  Company Number: DE-BAYER-2018-069764

PATIENT
  Age: 65 Year
  Sex: Male
  Weight: 58 kg

DRUGS (16)
  1. METOPROLOL. [Interacting]
     Active Substance: METOPROLOL
     Indication: HYPERTENSION
     Dosage: 95 MG, QD
     Dates: start: 201409, end: 201506
  2. OMEPRAZOLE. [Concomitant]
     Active Substance: OMEPRAZOLE
     Indication: GASTRITIS
     Dosage: UNK
  3. SIMVASTATIN. [Interacting]
     Active Substance: SIMVASTATIN
     Indication: ATRIAL FIBRILLATION
     Dosage: 40 MG, QD
     Route: 048
     Dates: start: 20150416, end: 20150416
  4. CEFTRIAXONE. [Concomitant]
     Active Substance: CEFTRIAXONE
     Dosage: UNK
  5. FLUCONAZOL [Interacting]
     Active Substance: FLUCONAZOLE
     Dosage: UNK
  6. MEROPENEM. [Concomitant]
     Active Substance: MEROPENEM
     Dosage: UNK
  7. PIPERACILLIN AND TAZOBACTAM [Concomitant]
     Active Substance: PIPERACILLIN SODIUM\TAZOBACTAM SODIUM
     Dosage: UNK
  8. KALETRA [Concomitant]
     Active Substance: LOPINAVIR\RITONAVIR
     Indication: HIV INFECTION
     Dosage: UNK
  9. DOLUTEGRAVIR [Interacting]
     Active Substance: DOLUTEGRAVIR
     Indication: HIV INFECTION
     Dosage: 50 MG, QD
     Route: 048
     Dates: start: 20140919, end: 20150414
  10. CANDIO-HERMAL [Concomitant]
     Indication: OESOPHAGEAL CANDIDIASIS
     Dosage: UNK
  11. OMEPRAZOLE. [Concomitant]
     Active Substance: OMEPRAZOLE
     Indication: PROPHYLAXIS
     Dosage: UNK
  12. ASPIRIN. [Suspect]
     Active Substance: ASPIRIN
     Indication: ATRIAL FIBRILLATION
     Dosage: 100 MG, QD
  13. TRUVADA [Interacting]
     Active Substance: EMTRICITABINE\TENOFOVIR DISOPROXIL FUMARATE
     Indication: HIV INFECTION
     Dosage: 1 DF, QD
     Dates: start: 20140919, end: 20150414
  14. COTRIM FORTE EU RHO [Interacting]
     Active Substance: SULFAMETHOXAZOLE\TRIMETHOPRIM
     Indication: PROPHYLAXIS
  15. CANDIO-HERMAL [Concomitant]
     Indication: OESOPHAGEAL CANDIDIASIS
     Dosage: UNK
  16. PANTOPRAZOLE [Interacting]
     Active Substance: PANTOPRAZOLE
     Indication: GASTROOESOPHAGEAL REFLUX DISEASE
     Dosage: 1 X 20-40MG OVER YEARS
     Route: 048
     Dates: start: 20150327, end: 20150416

REACTIONS (55)
  - Faeces pale [Fatal]
  - Hepatic enzyme increased [Fatal]
  - Circulatory collapse [Fatal]
  - Splenomegaly [Fatal]
  - Pneumonia bacterial [Fatal]
  - Asthenia [Fatal]
  - Blood bilirubin increased [Fatal]
  - Leukopenia [Fatal]
  - Cholangitis [Fatal]
  - Abdominal pain upper [Fatal]
  - Decreased appetite [Fatal]
  - Fatigue [Fatal]
  - Sepsis [Fatal]
  - Multiple organ dysfunction syndrome [Fatal]
  - Cholangitis [Fatal]
  - Disseminated intravascular coagulation [Fatal]
  - Hypovolaemic shock [Fatal]
  - Hepatotoxicity [Fatal]
  - Hepatitis fulminant [Fatal]
  - Candida infection [Fatal]
  - Acidosis [Fatal]
  - Pyrexia [Fatal]
  - Chromaturia [Fatal]
  - General physical health deterioration [Fatal]
  - Renal failure [Fatal]
  - Hepatic necrosis [Fatal]
  - Lymphadenopathy [Fatal]
  - Confusional state [Fatal]
  - Hepatic function abnormal [Fatal]
  - Hyperferritinaemia [Fatal]
  - Duodenal ulcer haemorrhage [Fatal]
  - Drug interaction [Fatal]
  - Shock haemorrhagic [Fatal]
  - Nausea [Fatal]
  - Agranulocytosis [Fatal]
  - Hepatomegaly [Fatal]
  - Weight decreased [Fatal]
  - Drug-induced liver injury [Fatal]
  - Hepatitis [Fatal]
  - Jaundice [Fatal]
  - Bone marrow failure [Fatal]
  - Metabolic acidosis [Fatal]
  - Acute hepatic failure [Fatal]
  - Coagulopathy [Fatal]
  - Cholestasis [Fatal]
  - Hypoxia [Fatal]
  - Thrombocytopenia [Fatal]
  - Upper gastrointestinal haemorrhage [Fatal]
  - Septic shock [Fatal]
  - Ocular icterus [Fatal]
  - Neutropenia [Fatal]
  - Pancytopenia [Fatal]
  - Portal fibrosis [Fatal]
  - Abdominal pain [Fatal]
  - Hepatitis cholestatic [Fatal]

NARRATIVE: CASE EVENT DATE: 20150324
